FAERS Safety Report 9579942 (Version 1)
Quarter: 2013Q3

REPORT INFORMATION
  Report Type: Spontaneous
  Country: US (occurrence: None)
  Receive Date: 20130916
  Receipt Date: 20130916
  Transmission Date: 20140515
  Serious: Yes (Other)
  Sender: FDA-Public Use
  Company Number: JPI-P-025705

PATIENT
  Age: 71 Year
  Sex: Female
  Weight: 80.74 kg

DRUGS (5)
  1. XYREM (500 MILLIGRAM/MILLILITERS, SOLUTION) (SODIUM OXYBATE) [Suspect]
     Indication: CATAPLEXY
     Route: 048
     Dates: start: 20120809
  2. TRAZODONE [Concomitant]
  3. MODAFINIL [Concomitant]
  4. FLUOXETINE HYDROCHLORIDE [Concomitant]
  5. ENALAPRIL [Concomitant]

REACTIONS (2)
  - Hypertension [None]
  - Condition aggravated [None]
